FAERS Safety Report 15112740 (Version 1)
Quarter: 2018Q3

REPORT INFORMATION
  Report Type: Spontaneous
  Country: AR (occurrence: AR)
  Receive Date: 20180705
  Receipt Date: 20180705
  Transmission Date: 20181010
  Serious: Yes (Hospitalization)
  Sender: FDA-Public Use
  Company Number: AR-AMGEN-ARGSP2018091609

PATIENT
  Age: 68 Year
  Sex: Female
  Weight: 44 kg

DRUGS (1)
  1. ENBREL [Suspect]
     Active Substance: ETANERCEPT
     Indication: PRODUCT USED FOR UNKNOWN INDICATION
     Dosage: UNK
     Route: 065

REACTIONS (5)
  - Weight decreased [Unknown]
  - Lung disorder [Unknown]
  - Hand deformity [Unknown]
  - Malaise [Unknown]
  - Arthritis [Unknown]

NARRATIVE: CASE EVENT DATE: 2014
